FAERS Safety Report 4379414-4 (Version None)
Quarter: 2004Q2

REPORT INFORMATION
  Report Type: 
  Country: None (occurrence: None)
  Receive Date: 20040610
  Receipt Date: 20040528
  Transmission Date: 20050107
  Serious: Yes (Other)
  Sender: FDA-Public Use
  Company Number: HQWYE171702JUN04

PATIENT
  Age: 68 Year
  Sex: Male
  Weight: 97.61 kg

DRUGS (1)
  1. RAPAMUNE [Suspect]
     Indication: PROPHYLAXIS AGAINST TRANSPLANT REJECTION
     Dosage: 1 MG 1 X PER 1 DAY
     Dates: start: 20020626

REACTIONS (2)
  - IMMUNOSUPPRESSION [None]
  - TONGUE NEOPLASM MALIGNANT STAGE UNSPECIFIED [None]
